FAERS Safety Report 12520314 (Version 1)
Quarter: 2016Q2

REPORT INFORMATION
  Report Type: Spontaneous
  Country: US (occurrence: None)
  Receive Date: 20160630
  Receipt Date: 20160630
  Transmission Date: 20160815
  Serious: Yes (Death)
  Sender: FDA-Public Use
  Company Number: None

PATIENT
  Age: 57 Year
  Sex: Male

DRUGS (10)
  1. SILDENAFIL. [Concomitant]
     Active Substance: SILDENAFIL
  2. LISINOPRIL. [Concomitant]
     Active Substance: LISINOPRIL
  3. SIMVASTATIN. [Concomitant]
     Active Substance: SIMVASTATIN
  4. LETAIRIS [Suspect]
     Active Substance: AMBRISENTAN
     Indication: PULMONARY ARTERIAL HYPERTENSION
     Route: 048
     Dates: start: 201408, end: 201606
  5. GLARGINE INSULIN [Concomitant]
     Active Substance: INSULIN GLARGINE
  6. CITALOPRAM [Concomitant]
     Active Substance: CITALOPRAM HYDROBROMIDE
  7. ATENOLOL. [Concomitant]
     Active Substance: ATENOLOL
  8. METFORMIN [Concomitant]
     Active Substance: METFORMIN HYDROCHLORIDE
  9. KCL [Concomitant]
     Active Substance: POTASSIUM CHLORIDE
  10. FUROSEMIDE. [Concomitant]
     Active Substance: FUROSEMIDE

REACTIONS (1)
  - Death [None]

NARRATIVE: CASE EVENT DATE: 20160613
